FAERS Safety Report 16434584 (Version 2)
Quarter: 2020Q4

REPORT INFORMATION
  Report Type: Report from Study
  Country: CA (occurrence: CA)
  Receive Date: 20190614
  Receipt Date: 20201026
  Transmission Date: 20210113
  Serious: Yes (Other)
  Sender: FDA-Public Use
  Company Number: CA-GLAXOSMITHKLINE-CA2019GSK103592

PATIENT
  Sex: Male

DRUGS (7)
  1. VENTOLIN [Suspect]
     Active Substance: ALBUTEROL SULFATE
     Indication: ASTHMA
     Dosage: UNK
  2. NASONEX [Suspect]
     Active Substance: MOMETASONE FUROATE
     Indication: PRODUCT USED FOR UNKNOWN INDICATION
     Dosage: 2 SPRAYS IN EACH NOSTRIL IN THE MORNING AND EVENING.
  3. ZENHALE [Suspect]
     Active Substance: FORMOTEROL FUMARATE\MOMETASONE FUROATE
     Indication: PRODUCT USED FOR UNKNOWN INDICATION
     Dosage: UNK, 200/5 - 2 INHALATIONS IN THE MORNING AND EVENING
  4. CALCIUM D [Suspect]
     Active Substance: CALCIUM\VITAMIN D
     Indication: PRODUCT USED FOR UNKNOWN INDICATION
     Dosage: UNK,2 SPRAYS IN EACH NOSTRIL IN THE MORNING AND EVENING.
  5. ASMANEX [Suspect]
     Active Substance: MOMETASONE FUROATE
     Indication: PRODUCT USED FOR UNKNOWN INDICATION
     Dosage: UNK, 200 - 1 INHALATION IN THE MORNING AND EVENING
  6. TUDORZA [Suspect]
     Active Substance: ACLIDINIUM BROMIDE
     Indication: PRODUCT USED FOR UNKNOWN INDICATION
     Dosage: UNK, 1 INHALATION IN THE MORNING AND EVENING
  7. MEPOLIZUMAB [Suspect]
     Active Substance: MEPOLIZUMAB
     Indication: ASTHMA
     Dosage: 100 MG, Z, (EVERY 4 WEEKS)_
     Route: 042
     Dates: start: 20160825

REACTIONS (6)
  - Cough [Unknown]
  - Blood count abnormal [Unknown]
  - Occupational exposure to extreme temperature [Unknown]
  - Bronchial obstruction [Not Recovered/Not Resolved]
  - Productive cough [Unknown]
  - Wheezing [Unknown]
